FAERS Safety Report 4695522-2 (Version None)
Quarter: 2005Q2

REPORT INFORMATION
  Report Type: 
  Country: None (occurrence: None)
  Receive Date: 20050620
  Receipt Date: 20050620
  Transmission Date: 20051028
  Serious: Yes (Other)
  Sender: FDA-Public Use
  Company Number: None

PATIENT
  Sex: Male
  Weight: 97.5234 kg

DRUGS (1)
  1. SINEMET CR [Suspect]
     Indication: PARKINSON'S DISEASE
     Dosage: 1 TAB    4X/DAY    ORAL
     Route: 048
     Dates: start: 20050601, end: 20050610

REACTIONS (5)
  - BALANCE DISORDER [None]
  - FALL [None]
  - FEELING COLD [None]
  - PARKINSONISM [None]
  - PHARMACEUTICAL PRODUCT COMPLAINT [None]
